FAERS Safety Report 24956947 (Version 1)
Quarter: 2025Q1

REPORT INFORMATION
  Report Type: Spontaneous
  Country: EG (occurrence: EG)
  Receive Date: 20250211
  Receipt Date: 20250211
  Transmission Date: 20250409
  Serious: Yes (Death)
  Sender: PFIZER
  Company Number: EG-PFIZER INC-PV202500015906

PATIENT
  Age: 45 Year
  Sex: Female

DRUGS (4)
  1. SUTENT [Suspect]
     Active Substance: SUNITINIB MALATE
     Indication: Metastatic renal cell carcinoma
     Dosage: 50 MG, ONCE DAILY FOR 2 WEEKS ON AND 1 WEEK OFF
     Route: 048
     Dates: start: 20240817, end: 20241026
  2. XGEVA [Concomitant]
     Active Substance: DENOSUMAB
  3. XELODA [Concomitant]
     Active Substance: CAPECITABINE
     Dosage: 500 MG, 2X/DAY (EVERY 12 HOUR)
  4. TYKERB [Concomitant]
     Active Substance: LAPATINIB DITOSYLATE

REACTIONS (1)
  - Death [Fatal]
